FAERS Safety Report 8767067 (Version 1)
Quarter: 2012Q4

REPORT INFORMATION
  Report Type: 
  Country: US (occurrence: US)
  Receive Date: 20120830
  Receipt Date: 20120830
  Transmission Date: 20130627
  Serious: Yes (Hospitalization)
  Sender: FDA-Public Use
  Company Number: US-ELI_LILLY_AND_COMPANY-US201208007670

PATIENT
  Age: 69 Year
  Sex: Female

DRUGS (4)
  1. CYMBALTA [Suspect]
     Indication: NERVE INJURY
     Dosage: 30 mg, bid
  2. CYMBALTA [Suspect]
     Dosage: 30 mg, qd
  3. CYMBALTA [Suspect]
     Dosage: 30 mg, bid
  4. CYMBALTA [Suspect]
     Dosage: 30 mg, qd

REACTIONS (3)
  - Nerve compression [Not Recovered/Not Resolved]
  - Hyperhidrosis [Not Recovered/Not Resolved]
  - Off label use [Unknown]
